FAERS Safety Report 24840593 (Version 1)
Quarter: 2025Q1

REPORT INFORMATION
  Report Type: Spontaneous
  Country: US (occurrence: None)
  Receive Date: 20250114
  Receipt Date: 20250114
  Transmission Date: 20250409
  Serious: No
  Sender: FDA-CTU
  Company Number: None

PATIENT
  Age: 73 Year
  Sex: Female

DRUGS (1)
  1. LENVIMA [Suspect]
     Active Substance: LENVATINIB
     Indication: Cervix carcinoma
     Dosage: FREQUENCY : DAILY;?
     Route: 048
     Dates: start: 20230901

REACTIONS (6)
  - Skin ulcer [None]
  - Burning sensation [None]
  - Diarrhoea [None]
  - Epistaxis [None]
  - Joint stiffness [None]
  - Skin ulcer [None]

NARRATIVE: CASE EVENT DATE: 20250114
